FAERS Safety Report 4542191-8 (Version None)
Quarter: 2004Q4

REPORT INFORMATION
  Report Type: 
  Country: None (occurrence: None)
  Receive Date: 20041227
  Receipt Date: 20041222
  Transmission Date: 20050328
  Serious: Yes (Hospitalization)
  Sender: FDA-Public Use
  Company Number: HQWYE171023DEC04

PATIENT
  Age: 20 Year
  Sex: Female

DRUGS (2)
  1. PREMARIN [Suspect]
     Indication: MENORRHAGIA
     Dosage: ^HIGH DOS^
  2. IRON       (IRON) [Suspect]
     Indication: ANAEMIA
     Dosage: ORAL
     Route: 048

REACTIONS (13)
  - ANAEMIA [None]
  - CHEST PAIN [None]
  - DILATATION ATRIAL [None]
  - DILATATION VENTRICULAR [None]
  - DRUG INEFFECTIVE [None]
  - ELECTROCARDIOGRAM ST SEGMENT DEPRESSION [None]
  - LUNG INFILTRATION [None]
  - MENORRHAGIA [None]
  - PULMONARY HYPERTENSION [None]
  - PYREXIA [None]
  - SYNCOPE [None]
  - TACHYCARDIA [None]
  - TRICUSPID VALVE INCOMPETENCE [None]
